FAERS Safety Report 8978928 (Version 1)
Quarter: 2012Q4

REPORT INFORMATION
  Report Type: 
  Country: RS (occurrence: RS)
  Receive Date: 20121220
  Receipt Date: 20121220
  Transmission Date: 20130627
  Serious: Yes (Other)
  Sender: FDA-Public Use
  Company Number: RS-US-EMD SERONO, INC.-7183219

PATIENT
  Age: 53 Year
  Sex: Female

DRUGS (2)
  1. MITOXANTRONE [Suspect]
     Indication: SECONDARY PROGRESSIVE MULTIPLE SCLEROSIS
     Route: 042
  2. L-THYROXIN [Suspect]
     Indication: THYROID CANCER

REACTIONS (3)
  - Thyroid cancer [Recovered/Resolved]
  - Superficial spreading melanoma stage unspecified [Recovered/Resolved]
  - Invasive lobular breast carcinoma [Recovered/Resolved]
